FAERS Safety Report 15617876 (Version 2)
Quarter: 2018Q4

REPORT INFORMATION
  Report Type: Spontaneous
  Country: US (occurrence: US)
  Receive Date: 20181114
  Receipt Date: 20181218
  Transmission Date: 20190205
  Serious: No
  Sender: FDA-Public Use
  Company Number: US-PFIZER INC-2018463833

PATIENT
  Age: 34 Year
  Sex: Female

DRUGS (1)
  1. XELJANZ XR [Suspect]
     Active Substance: TOFACITINIB CITRATE
     Dosage: 11 MG, UNK
     Dates: start: 201808

REACTIONS (4)
  - Loss of personal independence in daily activities [Unknown]
  - Intervertebral disc disorder [Unknown]
  - Condition aggravated [Unknown]
  - Malaise [Unknown]
